FAERS Safety Report 20532796 (Version 2)
Quarter: 2022Q2

REPORT INFORMATION
  Report Type: Spontaneous
  Country: ES (occurrence: ES)
  Receive Date: 20220301
  Receipt Date: 20220408
  Transmission Date: 20220720
  Serious: Yes (Hospitalization, Disabling, Other)
  Sender: FDA-Public Use
  Company Number: None

PATIENT
  Age: 88 Year
  Sex: Female

DRUGS (15)
  1. CETIRIZINE [Suspect]
     Active Substance: CETIRIZINE HYDROCHLORIDE
     Dosage: CETIRIZINA (2364A) , THERAPY START DATE AND END DATE : NASK
  2. SERTRALINE [Suspect]
     Active Substance: SERTRALINE HYDROCHLORIDE
     Dosage: THERAPY START DATE AND END DATE : NASK
     Route: 048
  3. EBASTINE [Suspect]
     Active Substance: EBASTINE
     Dosage: EBASTINA (2231A) , THERAPY START DATE AND END DATE : NASK
  4. IBRUTINIB [Concomitant]
     Active Substance: IBRUTINIB
     Dosage: 3 DOSAGE FORMS DAILY; 3 TABLETS PER DAY , IBRUTINIB (8719A)
  5. ACYCLOVIR [Concomitant]
     Active Substance: ACYCLOVIR
     Dosage: ACICLOVIR (201A)
  6. LYRICA [Concomitant]
     Active Substance: PREGABALIN
  7. ENALAPRIL [Concomitant]
     Active Substance: ENALAPRIL
     Dosage: ENALAPRIL (2142A)
  8. ACETYLCYSTEINE [Concomitant]
     Active Substance: ACETYLCYSTEINE
     Dosage: ACETILCISTEINA (233A)
  9. ERYTHROPOIETIN [Concomitant]
     Active Substance: ERYTHROPOIETIN
     Dosage: STRENGTH : 30,000 IU/0.75 ML
  10. FOSTER [Concomitant]
     Active Substance: BECLOMETHASONE\FORMOTEROL
     Dosage: STRENGTH : 100 MICROGRAMS/6 MICROGRAMS , INHALATION POWDER FOR INHALATION
  11. TERBUTALINE SULFATE [Concomitant]
     Active Substance: TERBUTALINE SULFATE
     Dosage: STRENGTH : 500 MICROGRAMS/INHALATION
  12. FERBISOL [Concomitant]
  13. ATORVASTATIN [Concomitant]
     Active Substance: ATORVASTATIN
     Dosage: 10 TABLETS
  14. CALCIFEDIOL [Concomitant]
     Active Substance: CALCIFEDIOL
  15. LEVOTHYROXINE [Concomitant]
     Active Substance: LEVOTHYROXINE

REACTIONS (1)
  - Fall [Recovering/Resolving]

NARRATIVE: CASE EVENT DATE: 20220202
